FAERS Safety Report 9718207 (Version 2)
Quarter: 2013Q4

REPORT INFORMATION
  Report Type: Spontaneous
  Country: FR (occurrence: FR)
  Receive Date: 20131127
  Receipt Date: 20131230
  Transmission Date: 20140711
  Serious: Yes (Death, Life-Threatening, Hospitalization, Other)
  Sender: FDA-Public Use
  Company Number: FR-ELI_LILLY_AND_COMPANY-FR201311007408

PATIENT
  Age: 72 Year
  Sex: Male
  Weight: 80 kg

DRUGS (5)
  1. ALIMTA [Suspect]
     Indication: LUNG ADENOCARCINOMA
     Dosage: 1000 MG/M2, UNK
     Route: 042
     Dates: start: 20131023, end: 20131023
  2. CARBOPLATINE [Suspect]
     Indication: LUNG ADENOCARCINOMA
     Dosage: 330 MG, UNK
     Route: 042
     Dates: start: 20131023, end: 20131023
  3. DEXAMETHASONE [Concomitant]
     Dosage: 4 MG, BID
  4. FOLINIC ACID [Concomitant]
  5. VITAMIN B12 [Concomitant]
     Route: 030

REACTIONS (8)
  - Pancytopenia [Fatal]
  - Renal failure acute [Fatal]
  - Hepatitis [Fatal]
  - General physical health deterioration [Fatal]
  - Mucosal inflammation [Recovered/Resolved]
  - Retinal haemorrhage [Unknown]
  - Pyrexia [Unknown]
  - Off label use [Unknown]
